FAERS Safety Report 8179306 (Version 4)
Quarter: 2013Q2

REPORT INFORMATION
  Report Type: Report from Study
  Country: US (occurrence: US)
  Receive Date: 20111013
  Receipt Date: 20130513
  Transmission Date: 20140414
  Serious: Yes (Hospitalization, Other)
  Sender: FDA-Public Use
  Company Number: PHEH2011US04047

PATIENT
  Age: 54 Year
  Sex: Male

DRUGS (25)
  1. TASIGNA [Suspect]
     Indication: CHRONIC MYELOID LEUKAEMIA
     Dosage: 300 MG, BID
     Route: 048
     Dates: start: 201104
  2. TASIGNA [Suspect]
     Dosage: 300 MG, BID
     Route: 048
  3. TASIGNA [Suspect]
     Dosage: 150 MG, BID
     Route: 048
  4. TASIGNA [Suspect]
     Dosage: 160 MG, BID
     Route: 048
     Dates: end: 20110720
  5. PROMETHAZINE HYDROCHLORIDE [Concomitant]
     Dosage: UNK
     Dates: start: 20110505
  6. METOPROLOL SUCCINATE [Concomitant]
     Dosage: 25 MG, QD
     Route: 048
  7. MUCINEX [Concomitant]
     Route: 048
  8. OMEPRAZOLE [Concomitant]
     Dosage: 40 MG, QD
     Route: 048
  9. PROBIOTICS [Concomitant]
     Dosage: 1 DF, DAILY
     Route: 048
  10. ZINC [Concomitant]
     Dosage: 1 DF, DAILY
     Route: 048
  11. ZYRTEC [Concomitant]
     Dosage: 10 MG, QD
     Route: 048
  12. LACTULOSE [Concomitant]
     Dosage: UNK
     Route: 048
     Dates: start: 20110512, end: 20130220
  13. MORPHINE SULFATE [Concomitant]
     Dosage: 15 MG, BID
     Route: 048
     Dates: start: 20120215, end: 20121030
  14. MORPHINE SULFATE [Concomitant]
     Dosage: 15 MG, BID
     Route: 048
     Dates: end: 20130220
  15. NYSTATIN [Concomitant]
     Dosage: 100000 U, UNK
     Route: 048
     Dates: start: 20110505, end: 20130115
  16. NYSTATIN [Concomitant]
     Dosage: 100000 U, UNK
     Route: 048
     Dates: end: 20130220
  17. SODIUM CHLORIDE [Concomitant]
     Dosage: 1000 ML, DAILY
     Route: 042
     Dates: start: 20120222, end: 20120509
  18. ACETAMINOPHEN [Concomitant]
     Dosage: UNK
     Route: 048
     Dates: end: 20121030
  19. ASPIRIN [Concomitant]
     Dosage: UNK
     Route: 048
     Dates: end: 20110606
  20. BENTYL [Concomitant]
     Dosage: UNK
     Route: 030
     Dates: end: 20110720
  21. FISH OIL [Concomitant]
     Dosage: UNK
     Route: 048
     Dates: end: 20110505
  22. FUROSEMIDE [Concomitant]
     Dosage: 10 MG, DAILY
     Route: 048
     Dates: end: 20110720
  23. KLOR-CON M10 [Concomitant]
     Dosage: UNK
     Route: 048
     Dates: end: 20110720
  24. POTASSIUM GLUCONATE [Concomitant]
     Dosage: 2.5 MEQ, QD
     Route: 048
     Dates: end: 20110720
  25. SUCRALFATE [Concomitant]
     Dosage: UNK
     Route: 048
     Dates: end: 20110720

REACTIONS (7)
  - Neoplasm malignant [Unknown]
  - Oesophageal adenocarcinoma [Recovering/Resolving]
  - Second primary malignancy [Unknown]
  - Dysphagia [Unknown]
  - Duodenal ulcer haemorrhage [Unknown]
  - Pain [Recovering/Resolving]
  - Duodenal ulcer perforation [Unknown]
